FAERS Safety Report 5781115-2 (Version None)
Quarter: 2008Q2

REPORT INFORMATION
  Report Type: 
  Country: None (occurrence: None)
  Receive Date: 20080620
  Receipt Date: 20080613
  Transmission Date: 20081010
  Serious: Yes (Other)
  Sender: FDA-Public Use
  Company Number: GB-PFIZER INC-2008050477

PATIENT
  Age: 48 Year
  Sex: Male

DRUGS (3)
  1. METHYLPREDNISOLONE SODIUM SUCCINATE [Suspect]
     Route: 042
  2. CYCLOPHOSPHAMIDE [Suspect]
     Route: 042
  3. RITUXIMAB [Suspect]
     Dosage: DAILY DOSE:375MG/M*2

REACTIONS (1)
  - RENAL NECROSIS [None]
